FAERS Safety Report 25701755 (Version 2)
Quarter: 2025Q4

REPORT INFORMATION
  Report Type: Report from Study
  Country: None (occurrence: JP)
  Receive Date: 20250819
  Receipt Date: 20251121
  Transmission Date: 20260117
  Serious: Yes (Hospitalization)
  Sender: ALNYLAM PHARMACEUTICALS
  Company Number: JP-ALNYLAM PHARMACEUTICALS, INC.-ALN-2025-005003

PATIENT
  Weight: 62 kg

DRUGS (8)
  1. AMVUTTRA [Suspect]
     Active Substance: VUTRISIRAN
     Indication: Hereditary neuropathic amyloidosis
     Dosage: 25 MILLIGRAM, Q3M
  2. AMVUTTRA [Suspect]
     Active Substance: VUTRISIRAN
     Dosage: 25 MILLIGRAM, Q3M
  3. Chocola a [Concomitant]
     Indication: Vitamin supplementation
     Dosage: 2500 IU INTERNATIONAL UNIT(S)/DAY
  4. BISOPROLOL FUMARATE [Concomitant]
     Active Substance: BISOPROLOL FUMARATE
     Indication: Hereditary neuropathic amyloidosis
     Dosage: 1.25 MILLIGRAM/DAY
  5. EPLERENONE [Concomitant]
     Active Substance: EPLERENONE
     Indication: Hereditary neuropathic amyloidosis
     Dosage: 50 MILLIGRAM/DAY
  6. Azosemide dsep [Concomitant]
     Indication: Hereditary neuropathic amyloidosis
     Dosage: 60 MILLIGRAM/DAY
  7. LOSARTAN POTASSIUM [Concomitant]
     Active Substance: LOSARTAN POTASSIUM
     Indication: Hereditary neuropathic amyloidosis
     Dosage: 25 MILLIGRAM/DAY
  8. DAPAGLIFLOZIN [Concomitant]
     Active Substance: DAPAGLIFLOZIN
     Indication: Hereditary neuropathic amyloidosis
     Dosage: 10 MILLIGRAM/DAY

REACTIONS (1)
  - Atrioventricular block complete [Recovering/Resolving]
